FAERS Safety Report 8814313 (Version 1)
Quarter: 2012Q4

REPORT INFORMATION
  Report Type: 
  Country: FR (occurrence: FR)
  Receive Date: 20120928
  Receipt Date: 20120928
  Transmission Date: 20130627
  Serious: Yes (Life-Threatening, Hospitalization, Other)
  Sender: FDA-Public Use
  Company Number: FR-GENZYME-THYM-1003425

PATIENT
  Age: 56 None
  Sex: Male

DRUGS (6)
  1. THYMOGLOBULINE [Suspect]
     Indication: BONE MARROW CONDITIONING REGIMEN
     Dosage: 2500 mcg/kg, qd
     Route: 042
     Dates: start: 20120809, end: 20120810
  2. FLUDARA [Suspect]
     Indication: BONE MARROW CONDITIONING REGIMEN
     Dosage: UNK
     Route: 065
     Dates: start: 201208
  3. BUSILVEX [Suspect]
     Indication: BONE MARROW CONDITIONING REGIMEN
     Dosage: UNK
     Route: 065
     Dates: start: 201208
  4. CRESTOR [Concomitant]
     Indication: PRODUCT USED FOR UNKNOWN INDICATION
     Dosage: 10 mg, qd
     Route: 065
  5. METFORMIN [Concomitant]
     Indication: PRODUCT USED FOR UNKNOWN INDICATION
     Dosage: 1000 mg, UNK (2 tablets per day)
     Route: 065
  6. LOXEN [Concomitant]
     Indication: PRODUCT USED FOR UNKNOWN INDICATION
     Dosage: 50 mg, UNK (2 tablets per day)
     Route: 065

REACTIONS (10)
  - Hyperthermia [Recovered/Resolved]
  - Renal failure [Unknown]
  - Atrial fibrillation [Unknown]
  - Hepatic steatosis [Unknown]
  - Acute respiratory distress syndrome [Recovered/Resolved]
  - Hepatic failure [Unknown]
  - Pleural effusion [Unknown]
  - Aplasia [Unknown]
  - Pyrexia [Unknown]
  - Fungal infection [Unknown]
